FAERS Safety Report 9797062 (Version 1)
Quarter: 2014Q1

REPORT INFORMATION
  Report Type: Spontaneous
  Country: CL (occurrence: CL)
  Receive Date: 20140105
  Receipt Date: 20140105
  Transmission Date: 20141002
  Serious: Yes (Other)
  Sender: FDA-Public Use
  Company Number: CL-PFIZER INC-2014000559

PATIENT
  Age: 81 Year
  Sex: Female

DRUGS (4)
  1. XALATAN [Suspect]
     Indication: GLAUCOMA
     Dosage: 1 DROP PER EYE AT 8:00PM
     Route: 047
     Dates: start: 2008
  2. GABAPENTIN [Concomitant]
  3. CARBAMAZEPINE [Concomitant]
  4. ESOMEPRAZOLE [Concomitant]

REACTIONS (1)
  - Trigeminal nerve disorder [Not Recovered/Not Resolved]
